FAERS Safety Report 6443903-9 (Version None)
Quarter: 2009Q4

REPORT INFORMATION
  Report Type: 
  Country: None (occurrence: None)
  Receive Date: 20091117
  Receipt Date: 20091104
  Transmission Date: 20100525
  Serious: Yes (Hospitalization)
  Sender: FDA-Public Use
  Company Number: NL-GENENTECH-278837

PATIENT
  Sex: Male
  Weight: 186 kg

DRUGS (8)
  1. RITUXIMAB [Suspect]
     Indication: MALIGNANT LYMPHOID NEOPLASM
     Dosage: 770 MG, QD
     Route: 042
     Dates: start: 20090219
  2. DEXAMETHASONE [Suspect]
     Indication: NEOPLASM
     Dosage: 40 MG, QD
     Route: 048
     Dates: start: 20090219
  3. CISPLATIN [Suspect]
     Indication: NEOPLASM
     Dosage: 210 MG, QD
     Route: 042
     Dates: start: 20090219
  4. CYTARABINE [Suspect]
     Indication: NEOPLASM
     Dosage: 4100 MG, QD
     Route: 042
     Dates: start: 20090220
  5. ESOMEPRAZOLE [Concomitant]
     Indication: DYSPEPSIA
     Dosage: 20 MG, UNK
     Route: 048
     Dates: start: 20090218, end: 20090227
  6. CIPROFLOXACIN [Concomitant]
     Indication: PROPHYLAXIS
     Dosage: 500 MG, UNK
     Route: 048
     Dates: start: 20090218, end: 20090227
  7. POSACONAZOLE [Concomitant]
     Indication: PROPHYLAXIS
     Dosage: UNK
     Route: 048
     Dates: start: 20090218
  8. VALACYCLOVIR [Concomitant]
     Indication: PROPHYLAXIS
     Dosage: 500 MG, UNK
     Route: 048
     Dates: end: 20090503

REACTIONS (1)
  - FEBRILE NEUTROPENIA [None]
